FAERS Safety Report 16876380 (Version 1)
Quarter: 2019Q4

REPORT INFORMATION
  Report Type: Spontaneous
  Country: US (occurrence: US)
  Receive Date: 20191002
  Receipt Date: 20191002
  Transmission Date: 20200122
  Serious: Yes (Other)
  Sender: FDA-Public Use
  Company Number: None

PATIENT
  Age: 19 Year
  Sex: Male
  Weight: 83 kg

DRUGS (13)
  1. AQUADEKS 2 TABLETS TWICE DAILY [Concomitant]
  2. BACTRIM DS TWICE DAILY [Concomitant]
  3. TOBRAMYCIN NEBULIZER 5ML TWICE DAILY [Concomitant]
  4. CITALOPRAM 20 MG DAILY [Concomitant]
  5. MELATONIN 3 MG 2 TABLETS HS [Concomitant]
  6. ORKAMBI [Suspect]
     Active Substance: IVACAFTOR\LUMACAFTOR
     Indication: CYSTIC FIBROSIS
     Route: 048
     Dates: start: 20150923, end: 20180705
  7. DORNASE ALFA 2.5 ML DAILY [Concomitant]
  8. CREON 24,000 UNITS 6 CAPS TID WITH MEALS [Concomitant]
  9. ALBUTEROL INHALER PRN [Concomitant]
  10. VITAMIN D2 50,000 UNITS 1 TABLET WEEKLY [Concomitant]
  11. CETIRIZINE 10 MG DAILY [Concomitant]
  12. MIRALAX 17 G 1 CAPFUL AS NEEDED [Concomitant]
  13. FLUTICASONE 110 MCG 1 PUFF Q 12 [Concomitant]

REACTIONS (1)
  - Hypertension [None]

NARRATIVE: CASE EVENT DATE: 20150923
